FAERS Safety Report 6284334-4 (Version None)
Quarter: 2009Q3

REPORT INFORMATION
  Report Type: 
  Country: None (occurrence: None)
  Receive Date: 20090727
  Receipt Date: 20090717
  Transmission Date: 20100115
  Serious: Yes (Other)
  Sender: FDA-Public Use
  Company Number: US-AMGEN-QUU356361

PATIENT
  Sex: Female

DRUGS (1)
  1. ENBREL [Suspect]
     Indication: PSORIASIS
     Dates: start: 20080828

REACTIONS (6)
  - ASTHENIA [None]
  - EXOPHTHALMOS [None]
  - NAUSEA [None]
  - OROPHARYNGEAL PAIN [None]
  - SOMNOLENCE [None]
  - VOMITING [None]
